FAERS Safety Report 9191427 (Version 1)
Quarter: 2013Q1

REPORT INFORMATION
  Report Type: Spontaneous
  Country: US (occurrence: US)
  Receive Date: 20130326
  Receipt Date: 20130326
  Transmission Date: 20140127
  Serious: No
  Sender: FDA-Public Use
  Company Number: US-ASTRAZENECA-2013SE15506

PATIENT
  Sex: Female

DRUGS (1)
  1. NEXIUM [Suspect]
     Dosage: PRN
     Route: 048

REACTIONS (3)
  - Disease recurrence [Unknown]
  - Intentional drug misuse [Unknown]
  - Off label use [Unknown]
